FAERS Safety Report 13428920 (Version 1)
Quarter: 2017Q2

REPORT INFORMATION
  Report Type: Spontaneous
  Country: SI (occurrence: SI)
  Receive Date: 20170411
  Receipt Date: 20170411
  Transmission Date: 20170830
  Serious: Yes (Other)
  Sender: FDA-Public Use
  Company Number: SI-MYLANLABS-2017M1020693

PATIENT

DRUGS (1)
  1. FODISS 20 MG DISPERZIBILNE TABLETE [Suspect]
     Active Substance: FLUOXETINE HYDROCHLORIDE
     Indication: DEPRESSION
     Dosage: 20 MG, QD
     Route: 048

REACTIONS (3)
  - Urinary retention [Recovered/Resolved]
  - Oedema peripheral [Recovered/Resolved]
  - Back pain [Recovered/Resolved]
